FAERS Safety Report 8809640 (Version 1)
Quarter: 2012Q4

REPORT INFORMATION
  Report Type: 
  Country: US (occurrence: US)
  Receive Date: 20120926
  Receipt Date: 20120926
  Transmission Date: 20130627
  Serious: Yes (Hospitalization, Other)
  Sender: FDA-Public Use
  Company Number: US-ROCHE-1127960

PATIENT
  Sex: Female

DRUGS (8)
  1. AVASTIN [Suspect]
     Indication: BREAST CANCER FEMALE
     Route: 065
  2. XELODA [Suspect]
     Indication: BREAST CANCER FEMALE
     Route: 065
  3. GEMCITABINE [Concomitant]
  4. CISPLATIN [Concomitant]
  5. NAVELBINE [Concomitant]
  6. ADRIAMYCIN [Concomitant]
  7. CYTOXAN [Concomitant]
  8. TAXOTERE [Concomitant]

REACTIONS (6)
  - Pleural effusion [Unknown]
  - Back pain [Unknown]
  - Abdominal pain upper [Unknown]
  - Metastases to liver [Unknown]
  - Metastases to bone [Unknown]
  - Metastases to lung [Unknown]
